FAERS Safety Report 12123968 (Version 2)
Quarter: 2016Q1

REPORT INFORMATION
  Report Type: Spontaneous
  Country: IL (occurrence: IL)
  Receive Date: 20160228
  Receipt Date: 20160301
  Transmission Date: 20160526
  Serious: Yes (Death)
  Sender: FDA-Public Use
  Company Number: PHHY2016IL024958

PATIENT
  Age: 30 Year
  Sex: Female

DRUGS (1)
  1. REVOLADE [Suspect]
     Active Substance: ELTROMBOPAG
     Indication: HISTIOCYTOSIS HAEMATOPHAGIC
     Dosage: 50 MG, QD
     Route: 065

REACTIONS (2)
  - Product use issue [Unknown]
  - Death [Fatal]
